FAERS Safety Report 7874755-8 (Version None)
Quarter: 2011Q4

REPORT INFORMATION
  Report Type: 
  Country: None (occurrence: None)
  Receive Date: 20111031
  Receipt Date: 20111017
  Transmission Date: 20120403
  Serious: Yes (Other)
  Sender: FDA-Public Use
  Company Number: GB-ELI_LILLY_AND_COMPANY-GB201108007580

PATIENT
  Sex: Male
  Weight: 140 kg

DRUGS (6)
  1. METFORMIN HCL [Concomitant]
  2. BYETTA [Suspect]
     Indication: TYPE 2 DIABETES MELLITUS
     Dosage: 5 UG, BID
     Route: 058
     Dates: start: 20110720, end: 20110808
  3. BYETTA [Suspect]
     Dosage: 5 UG, BID
     Dates: start: 20111003
  4. LOSARTAN POTASSIUM [Concomitant]
  5. AMLODIPINE [Concomitant]
  6. ASPIRIN [Concomitant]

REACTIONS (4)
  - ABDOMINAL PAIN [None]
  - CONTUSION [None]
  - VOMITING [None]
  - NAUSEA [None]
